FAERS Safety Report 7803404-X (Version None)
Quarter: 2011Q4

REPORT INFORMATION
  Report Type: 
  Country: None (occurrence: None)
  Receive Date: 20111007
  Receipt Date: 20111005
  Transmission Date: 20120403
  Serious: Yes (Life-Threatening, Hospitalization, Other)
  Sender: FDA-Public Use
  Company Number: CU-BAYER-2011-080275

PATIENT
  Age: 53 Year
  Sex: Male
  Weight: 68 kg

DRUGS (7)
  1. ULTRAVIST 150 [Suspect]
     Indication: INTERVERTEBRAL DISC PROTRUSION
     Dosage: DAILY DOSE 10 ML
     Route: 037
     Dates: start: 20110831, end: 20110831
  2. NAPROXEN SODIUM [Concomitant]
     Dosage: 1 DF, QD
     Route: 048
     Dates: start: 20110828
  3. IBUPROFEN [Concomitant]
     Dosage: 1 DF, QD
     Route: 048
     Dates: end: 20110831
  4. DIPIRINONE [Concomitant]
     Indication: PAIN
     Dosage: 600 MG, TID (EVERY 8 HOURS)
     Route: 048
     Dates: start: 20110815
  5. INDOMETHACIN [Concomitant]
     Dosage: 1 DF, TID (25MG TABLET)
     Route: 048
     Dates: start: 20110828
  6. LIDOCAINE [Concomitant]
     Dosage: 1 ML, UNK
     Route: 058
     Dates: start: 20110831, end: 20110831
  7. MEPROBAMATE [Concomitant]
     Dosage: DAILY DOSE 400 MG
     Route: 048

REACTIONS (6)
  - OPISTHOTONUS [None]
  - MUSCLE CONTRACTIONS INVOLUNTARY [None]
  - TACHYCARDIA [None]
  - PARAESTHESIA [None]
  - VOMITING [None]
  - HYPERTENSION [None]
